FAERS Safety Report 9767014 (Version 1)
Quarter: 2013Q4

REPORT INFORMATION
  Report Type: Spontaneous
  Country: US (occurrence: US)
  Receive Date: 20131217
  Receipt Date: 20131217
  Transmission Date: 20140711
  Serious: No
  Sender: FDA-Public Use
  Company Number: US-GLAXOSMITHKLINE-A1036898A

PATIENT
  Age: 60 Year
  Sex: Male

DRUGS (10)
  1. VOTRIENT [Suspect]
     Indication: RENAL CANCER
     Dosage: 800MG PER DAY
     Route: 048
     Dates: start: 20130706
  2. AMLODIPINE [Concomitant]
  3. GLIPIZIDE [Concomitant]
  4. LOSARTAN [Concomitant]
  5. SIMVASTATIN [Concomitant]
  6. ASPIRIN [Concomitant]
  7. LORATADINE [Concomitant]
  8. OXYCODONE [Concomitant]
  9. INSULIN [Concomitant]
  10. LEVEMIR [Concomitant]

REACTIONS (2)
  - Lacrimation increased [Unknown]
  - Ageusia [Not Recovered/Not Resolved]
